FAERS Safety Report 9106535 (Version 1)
Quarter: 2013Q1

REPORT INFORMATION
  Report Type: Spontaneous
  Country: ES (occurrence: ES)
  Receive Date: 20130221
  Receipt Date: 20130221
  Transmission Date: 20140127
  Serious: Yes (Other)
  Sender: FDA-Public Use
  Company Number: ES-PFIZER INC-2013053495

PATIENT
  Age: 73 Year
  Sex: Female

DRUGS (2)
  1. SERTRALINE [Suspect]
     Indication: DEPRESSION
     Dosage: 50 MG, 1X/DAY
  2. SERTRALINE [Suspect]
     Dosage: 100 MG, 1X/DAY

REACTIONS (2)
  - Parkinsonism [Recovering/Resolving]
  - Fall [Unknown]
